FAERS Safety Report 10767625 (Version 2)
Quarter: 2015Q1

REPORT INFORMATION
  Report Type: Spontaneous
  Country: GB (occurrence: GB)
  Receive Date: 20150205
  Receipt Date: 20150225
  Transmission Date: 20150721
  Serious: Yes (Death)
  Sender: FDA-Public Use
  Company Number: GB-GE HEALTHCARE MEDICAL DIAGNOSTICS-VISP-PR-1501S-0026

PATIENT
  Age: 73 Year
  Sex: Female

DRUGS (6)
  1. VISIPAQUE [Suspect]
     Active Substance: IODIXANOL
     Indication: MELAENA
  2. VISIPAQUE [Suspect]
     Active Substance: IODIXANOL
     Indication: INTESTINAL PERFORATION
  3. VISIPAQUE [Suspect]
     Active Substance: IODIXANOL
     Indication: DYSPNOEA
  4. VISIPAQUE [Suspect]
     Active Substance: IODIXANOL
     Indication: HAEMOGLOBIN DECREASED
  5. VISIPAQUE [Suspect]
     Active Substance: IODIXANOL
     Indication: ACUTE ABDOMEN
     Route: 042
     Dates: start: 20150128, end: 20150128
  6. VISIPAQUE [Suspect]
     Active Substance: IODIXANOL
     Indication: DIAGNOSTIC PROCEDURE

REACTIONS (1)
  - Cardiac arrest [Fatal]

NARRATIVE: CASE EVENT DATE: 20150128
